FAERS Safety Report 9567171 (Version 1)
Quarter: 2013Q3

REPORT INFORMATION
  Report Type: Spontaneous
  Country: US (occurrence: US)
  Receive Date: 20130930
  Receipt Date: 20130930
  Transmission Date: 20140515
  Serious: No
  Sender: FDA-Public Use
  Company Number: US-AMGEN-USASP2012061983

PATIENT
  Age: 47 Year
  Sex: Female
  Weight: 86.17 kg

DRUGS (9)
  1. ENBREL [Suspect]
     Indication: PRODUCT USED FOR UNKNOWN INDICATION
     Dosage: 50 MG, QWK
     Route: 058
  2. METHOTREXATE [Concomitant]
     Dosage: 50 MG-2ML , UNK
  3. FOLIC ACID [Concomitant]
     Dosage: 1 MG, UNK
  4. CELEBREX [Concomitant]
     Dosage: 100 MG, UNK
  5. VITAMIN D                          /00107901/ [Concomitant]
     Dosage: HIGH CAPSULE POTENCY
  6. LIDODERM [Concomitant]
     Dosage: 5 %, UNK
  7. DILAUDID [Concomitant]
     Dosage: 2 MG, UNK
  8. MIRENA [Concomitant]
     Dosage: UNK
  9. ZOLOFT [Concomitant]
     Dosage: 25 MG, UNK

REACTIONS (1)
  - Gastrointestinal viral infection [Unknown]
